FAERS Safety Report 24544671 (Version 2)
Quarter: 2025Q3

REPORT INFORMATION
  Report Type: Spontaneous
  Country: US (occurrence: US)
  Receive Date: 20241024
  Receipt Date: 20250814
  Transmission Date: 20251020
  Serious: Yes (Hospitalization, Other)
  Sender: LUPIN
  Company Number: US-LUPIN PHARMACEUTICALS INC.-2024-10300

PATIENT
  Age: 33 Year
  Sex: Female

DRUGS (1)
  1. TESTOSTERONE [Suspect]
     Active Substance: TESTOSTERONE
     Indication: Transgender hormonal therapy
     Route: 065

REACTIONS (5)
  - Idiopathic intracranial hypertension [Recovering/Resolving]
  - Cerebrospinal fluid leakage [Recovering/Resolving]
  - Papilloedema [Recovering/Resolving]
  - Blood testosterone free increased [Unknown]
  - Blood testosterone increased [Unknown]
